FAERS Safety Report 8598481-5 (Version None)
Quarter: 2012Q3

REPORT INFORMATION
  Report Type: 
  Country: None (occurrence: None)
  Receive Date: 20120816
  Receipt Date: 20120810
  Transmission Date: 20120928
  Serious: Yes (Other)
  Sender: FDA-Public Use
  Company Number: PHHY2011US41770

PATIENT
  Sex: Female
  Weight: 109.5 kg

DRUGS (5)
  1. GILENYA [Suspect]
     Dosage: 0.5 MG, QD
     Route: 048
     Dates: start: 20120709, end: 20120709
  2. CELEXA [Concomitant]
     Indication: DEPRESSION
     Dosage: 20 MG, QD
     Route: 048
     Dates: start: 20110110
  3. GILENYA [Suspect]
     Indication: MULTIPLE SCLEROSIS
     Dosage: 0.5 MG, QD
     Route: 048
     Dates: start: 20101130, end: 20110509
  4. NUVIGIL [Concomitant]
     Indication: FATIGUE
     Dosage: 150 MG, QD
     Route: 048
     Dates: start: 20110302
  5. AMITIZA [Concomitant]
     Indication: IRRITABLE BOWEL SYNDROME
     Dosage: 24 MG, QD
     Route: 048

REACTIONS (8)
  - ELECTROCARDIOGRAM ABNORMAL [None]
  - HEART RATE DECREASED [None]
  - CHEST DISCOMFORT [None]
  - GENITAL HERPES [None]
  - VULVAL DISORDER [None]
  - HERPES ZOSTER [None]
  - PAIN [None]
  - PRURITUS [None]
